FAERS Safety Report 14160832 (Version 2)
Quarter: 2017Q4

REPORT INFORMATION
  Report Type: Spontaneous
  Country: US (occurrence: US)
  Receive Date: 20171106
  Receipt Date: 20171116
  Transmission Date: 20180321
  Serious: Yes (Other)
  Sender: FDA-Public Use
  Company Number: US-LPDUSPRD-20171485

PATIENT
  Age: 68 Year
  Sex: Female

DRUGS (4)
  1. VENOFER [Suspect]
     Active Substance: IRON SUCROSE
     Dosage: 200 MG WITH SALINE FLUSH
     Route: 040
     Dates: start: 20170810, end: 20170821
  2. VITAMINS [Concomitant]
     Active Substance: VITAMINS
     Dosage: UNKNOWN
     Route: 065
  3. LIPITOR [Concomitant]
     Active Substance: ATORVASTATIN CALCIUM
     Dosage: ^89 MG^
     Route: 048
  4. GABAPENTIN. [Concomitant]
     Active Substance: GABAPENTIN
     Dosage: 300 MG AT BEDTIME
     Route: 048
     Dates: start: 2012

REACTIONS (1)
  - Neuropathy peripheral [Unknown]

NARRATIVE: CASE EVENT DATE: 20170817
